FAERS Safety Report 14858415 (Version 2)
Quarter: 2018Q2

REPORT INFORMATION
  Report Type: Report from Study
  Country: None (occurrence: US)
  Receive Date: 20180508
  Receipt Date: 20180522
  Transmission Date: 20180711
  Serious: Yes (Hospitalization, Other)
  Sender: FDA-Public Use
  Company Number: US-ABBVIE-18S-163-2347019-00

PATIENT
  Age: 56 Year
  Sex: Male
  Weight: 106.69 kg

DRUGS (1)
  1. SYNTHROID [Suspect]
     Active Substance: LEVOTHYROXINE SODIUM
     Indication: PRODUCT USED FOR UNKNOWN INDICATION
     Route: 048

REACTIONS (6)
  - Renal cancer stage I [Recovered/Resolved]
  - Craniocerebral injury [Not Recovered/Not Resolved]
  - Herpes zoster [Recovering/Resolving]
  - Fall [Recovered/Resolved]
  - Fall [Recovered/Resolved]
  - Rash macular [Not Recovered/Not Resolved]

NARRATIVE: CASE EVENT DATE: 20120126
